FAERS Safety Report 17999221 (Version 1)
Quarter: 2020Q3

REPORT INFORMATION
  Report Type: Spontaneous
  Country: FR (occurrence: FR)
  Receive Date: 20200709
  Receipt Date: 20200709
  Transmission Date: 20201103
  Serious: Yes (Hospitalization)
  Sender: FDA-Public Use
  Company Number: FR-TEVA-2020-FR-1798231

PATIENT
  Age: 64 Year
  Sex: Male

DRUGS (8)
  1. GLICLAZIDE [Concomitant]
     Active Substance: GLICLAZIDE
  2. KETOPROFENE [Suspect]
     Active Substance: KETOPROFEN
     Indication: LITHIASIS
     Dosage: NOT KNOWN
     Route: 048
     Dates: start: 202005, end: 202005
  3. XELEVIA [Concomitant]
     Active Substance: SITAGLIPTIN PHOSPHATE
  4. MOBIC [Suspect]
     Active Substance: MELOXICAM
     Indication: BACK PAIN
     Dosage: NOT KNOWN
     Route: 048
     Dates: start: 202005, end: 202005
  5. METFORMINE [Suspect]
     Active Substance: METFORMIN HYDROCHLORIDE
     Indication: TYPE 2 DIABETES MELLITUS
     Dosage: 3000 MG
     Route: 048
     Dates: end: 20200526
  6. INEXIUM [Concomitant]
     Active Substance: ESOMEPRAZOLE
  7. KARDEGIC [Concomitant]
     Active Substance: ASPIRIN DL-LYSINE
  8. TAHOR [Concomitant]
     Active Substance: ATORVASTATIN CALCIUM

REACTIONS (3)
  - Acute kidney injury [Recovered/Resolved]
  - Lactic acidosis [Recovered/Resolved]
  - Hyperkalaemia [Recovered/Resolved]

NARRATIVE: CASE EVENT DATE: 20200526
